FAERS Safety Report 16897754 (Version 2)
Quarter: 2019Q4

REPORT INFORMATION
  Report Type: Spontaneous
  Country: JP (occurrence: JP)
  Receive Date: 20191009
  Receipt Date: 20191101
  Transmission Date: 20200122
  Serious: Yes (Hospitalization, Other)
  Sender: FDA-Public Use
  Company Number: JP-TEVA-2019-JP-1075780

PATIENT
  Age: 74 Year
  Sex: Female
  Weight: 46.6 kg

DRUGS (11)
  1. REQUIP [Suspect]
     Active Substance: ROPINIROLE HYDROCHLORIDE
     Indication: PARKINSON^S DISEASE
     Dosage: 8 MILLIGRAM DAILY; THERAPY DURATION: 5 YEARS 6 MONTHS 25 DAYS
     Route: 048
     Dates: start: 20131204, end: 20190628
  2. MAGNESIUM OXIDE. [Concomitant]
     Active Substance: MAGNESIUM OXIDE
     Route: 065
  3. NEODOPASTON [Suspect]
     Active Substance: CARBIDOPA\LEVODOPA
     Route: 048
  4. LIVALO [Concomitant]
     Active Substance: PITAVASTATIN CALCIUM
     Dosage: 1 MILLIGRAM DAILY;
     Route: 065
  5. NEODOPASTON [Suspect]
     Active Substance: CARBIDOPA\LEVODOPA
     Dosage: 500 MILLIGRAM DAILY;
     Route: 048
  6. ELOBIXIBAT [Concomitant]
     Active Substance: ELOBIXIBAT
     Route: 065
     Dates: end: 20190628
  7. MYSLEE 5 MG [Concomitant]
     Dosage: 5 MILLIGRAM DAILY;
     Route: 065
     Dates: end: 20190628
  8. ETIZOLAM [Concomitant]
     Active Substance: ETIZOLAM
     Route: 065
     Dates: end: 20190628
  9. NEODOPASTON [Suspect]
     Active Substance: CARBIDOPA\LEVODOPA
     Indication: PARKINSON^S DISEASE
     Route: 048
     Dates: start: 20100728
  10. AZILECT [Suspect]
     Active Substance: RASAGILINE MESYLATE
     Indication: PARKINSON^S DISEASE
     Dosage: 1 MILLIGRAM DAILY;
     Route: 048
     Dates: start: 20190531, end: 20190628
  11. NEODOPASTON [Suspect]
     Active Substance: CARBIDOPA\LEVODOPA
     Dosage: 300 MILLIGRAM DAILY;
     Route: 048
     Dates: start: 20190628

REACTIONS (9)
  - Dizziness [Unknown]
  - Blood pressure decreased [Recovering/Resolving]
  - Syncope [Recovered/Resolved]
  - Fall [Unknown]
  - Subarachnoid haemorrhage [Recovered/Resolved]
  - Delusion [Recovered/Resolved]
  - Contusion [Unknown]
  - Hallucination [Recovered/Resolved]
  - Loss of consciousness [Recovered/Resolved]

NARRATIVE: CASE EVENT DATE: 20190614
